FAERS Safety Report 5418987-7 (Version None)
Quarter: 2007Q3

REPORT INFORMATION
  Report Type: 
  Country: None (occurrence: None)
  Receive Date: 20070817
  Receipt Date: 20070806
  Transmission Date: 20080115
  Serious: Yes (Life-Threatening)
  Sender: FDA-Public Use
  Company Number: FR-PFIZER INC-2007066379

PATIENT
  Sex: Male

DRUGS (4)
  1. DOSTINEX [Suspect]
     Indication: ADENOMA BENIGN
     Route: 048
  2. HYDROCORTISONE [Concomitant]
  3. LEVOTHYROXINE SODIUM [Concomitant]
  4. RAMIPRIL [Concomitant]
     Route: 048

REACTIONS (2)
  - CARDIAC FAILURE [None]
  - MITRAL VALVE DISEASE [None]
